FAERS Safety Report 16454469 (Version 2)
Quarter: 2019Q3

REPORT INFORMATION
  Report Type: Report from Study
  Country: KR (occurrence: KR)
  Receive Date: 20190620
  Receipt Date: 20190703
  Transmission Date: 20191004
  Serious: Yes (Hospitalization)
  Sender: FDA-Public Use
  Company Number: KR-CELLTRION INC.-2019KR021877

PATIENT

DRUGS (8)
  1. VISCUM ALBUM [Concomitant]
     Active Substance: VISCUM ALBUM FRUITING TOP
     Dosage: 20 MG 5A + NS 40ML MIX : INJECT TO CHEST SPACE
  2. GENEXOL [PACLITAXEL] [Suspect]
     Active Substance: PACLITAXEL
     Dosage: 123.2 MG
     Route: 042
     Dates: start: 20180801, end: 20190123
  3. RAMUCIRUMAB [Suspect]
     Active Substance: RAMUCIRUMAB
     Indication: PRODUCT USED FOR UNKNOWN INDICATION
     Dosage: 511.2 MG
     Route: 042
     Dates: start: 20180615, end: 20180615
  4. TRASTUZUMAB (UNKNOWN) [Suspect]
     Active Substance: TRASTUZUMAB
     Indication: HER-2 POSITIVE BREAST CANCER
     Dosage: 255.6 MG EVERY WEEK
     Route: 042
     Dates: start: 20180615, end: 20180615
  5. GENEXOL [PACLITAXEL] [Suspect]
     Active Substance: PACLITAXEL
     Indication: PRODUCT USED FOR UNKNOWN INDICATION
     Dosage: 140.8 MG
     Route: 042
     Dates: start: 20180615, end: 20180725
  6. TRASTUZUMAB (UNKNOWN) [Suspect]
     Active Substance: TRASTUZUMAB
     Dosage: 127.8 MG EVERY WEEK
     Route: 042
     Dates: start: 20180625, end: 20190522
  7. RAMUCIRUMAB [Suspect]
     Active Substance: RAMUCIRUMAB
     Dosage: 511.2 MG
     Route: 042
     Dates: start: 20180625, end: 20190515
  8. GENEXOL [PACLITAXEL] [Suspect]
     Active Substance: PACLITAXEL
     Dosage: 105.6 MG
     Route: 042
     Dates: start: 20190130, end: 20190522

REACTIONS (1)
  - Pneumothorax [Recovered/Resolved]

NARRATIVE: CASE EVENT DATE: 20190604
